FAERS Safety Report 8578858-4 (Version None)
Quarter: 2012Q3

REPORT INFORMATION
  Report Type: 
  Country: None (occurrence: None)
  Receive Date: 20120808
  Receipt Date: 20120806
  Transmission Date: 20120928
  Serious: Yes (Other)
  Sender: FDA-Public Use
  Company Number: PHHY2012MX068344

PATIENT
  Sex: Male

DRUGS (2)
  1. RITALIN [Suspect]
     Dosage: 0.5 DF, DAILY
  2. RITALIN [Suspect]
     Indication: ATTENTION DEFICIT/HYPERACTIVITY DISORDER
     Dosage: 10 MG, DAILY
     Dates: start: 20120704, end: 20120710

REACTIONS (3)
  - FALL [None]
  - SKULL FRACTURE [None]
  - HEAD INJURY [None]
